FAERS Safety Report 8910614 (Version 1)
Quarter: 2012Q4

REPORT INFORMATION
  Report Type: 
  Country: FR (occurrence: FR)
  Receive Date: 20121114
  Receipt Date: 20121114
  Transmission Date: 20130627
  Serious: Yes (Other)
  Sender: FDA-Public Use
  Company Number: FR-GLAXOSMITHKLINE-B0843780A

PATIENT
  Age: 62 Year
  Sex: Female

DRUGS (4)
  1. AZANTAC [Suspect]
     Indication: PREMEDICATION
     Dosage: 50MG Single dose
     Route: 042
     Dates: start: 20120918, end: 20120918
  2. PACLITAXEL [Suspect]
     Indication: BREAST CANCER
     Dosage: 161.1MG Single dose
     Route: 042
     Dates: start: 20120918, end: 20120918
  3. METHYLPREDNISOLONE [Suspect]
     Indication: PREMEDICATION
     Dosage: 120MG Single dose
     Route: 042
     Dates: start: 20120918, end: 20120918
  4. POLARAMINE [Suspect]
     Indication: PREMEDICATION
     Dosage: 5MG Single dose
     Route: 042
     Dates: start: 20120918, end: 20120918

REACTIONS (4)
  - Bronchospasm [Recovered/Resolved]
  - Cyanosis [Recovered/Resolved]
  - Cold sweat [Recovered/Resolved]
  - Infusion related reaction [None]
